FAERS Safety Report 12736557 (Version 3)
Quarter: 2017Q4

REPORT INFORMATION
  Report Type: Spontaneous
  Country: FR (occurrence: FR)
  Receive Date: 20160912
  Receipt Date: 20171212
  Transmission Date: 20180320
  Serious: Yes (Death, Hospitalization)
  Sender: FDA-Public Use
  Company Number: PHHY2016FR123724

PATIENT
  Age: 53 Year
  Sex: Female
  Weight: 83 kg

DRUGS (9)
  1. ROCEPHINE [Concomitant]
     Active Substance: CEFTRIAXONE SODIUM
     Indication: ANTIBIOTIC THERAPY
     Route: 065
  2. TAXOTERE [Concomitant]
     Active Substance: DOCETAXEL
     Indication: BREAST CANCER
     Dosage: 76 MG/M2, UNK
     Route: 065
  3. LASILIX [Concomitant]
     Active Substance: FUROSEMIDE
     Indication: PRODUCT USED FOR UNKNOWN INDICATION
     Route: 065
  4. ENDOXAN [Concomitant]
     Active Substance: CYCLOPHOSPHAMIDE
     Indication: BREAST CANCER
     Route: 065
  5. EPREX [Concomitant]
     Active Substance: ERYTHROPOIETIN
     Indication: ANAEMIA
     Dosage: 1 DF, QW
     Route: 065
  6. PACLITAXEL SANDOZ [Suspect]
     Active Substance: PACLITAXEL
     Indication: BREAST CANCER
     Route: 042
     Dates: start: 20110512, end: 201106
  7. DIFFU K [Concomitant]
     Active Substance: POTASSIUM CHLORIDE
     Indication: PRODUCT USED FOR UNKNOWN INDICATION
     Route: 065
  8. CIFLOX [Concomitant]
     Active Substance: CIPROFLOXACIN
     Indication: ANTIBIOTIC THERAPY
     Route: 065
  9. CHLORAMBUCIL [Concomitant]
     Active Substance: CHLORAMBUCIL
     Indication: BREAST CANCER
     Route: 065

REACTIONS (23)
  - Dyspepsia [Fatal]
  - Pain [Fatal]
  - Dry mouth [Fatal]
  - Neuromuscular toxicity [Fatal]
  - Generalised oedema [Not Recovered/Not Resolved]
  - General physical health deterioration [Fatal]
  - Diarrhoea [Fatal]
  - Chronic myelomonocytic leukaemia [Fatal]
  - Pericardial effusion [Fatal]
  - Hyperplasia [Fatal]
  - Pyrexia [Fatal]
  - Insomnia [Fatal]
  - Rash [Fatal]
  - Hyperthermia [Fatal]
  - Tachycardia [Fatal]
  - Oesophagitis [Fatal]
  - Anxiety [Fatal]
  - Epistaxis [Fatal]
  - Dyspnoea [Fatal]
  - Hypotension [Fatal]
  - Vulvovaginal mycotic infection [Fatal]
  - Fatigue [Fatal]
  - Pulmonary arterial hypertension [Unknown]

NARRATIVE: CASE EVENT DATE: 20110520
